FAERS Safety Report 12627119 (Version 1)
Quarter: 2016Q3

REPORT INFORMATION
  Report Type: Spontaneous
  Country: FR (occurrence: FR)
  Receive Date: 20160805
  Receipt Date: 20160805
  Transmission Date: 20161109
  Serious: Yes (Other)
  Sender: FDA-Public Use
  Company Number: FR-PFIZER INC-2016369507

PATIENT
  Age: 15 Year
  Sex: Female

DRUGS (7)
  1. RISPERDAL [Suspect]
     Active Substance: RISPERIDONE
     Dosage: 4 MG, 1X/DAY
     Route: 048
     Dates: start: 20110329, end: 20110407
  2. SERESTA [Suspect]
     Active Substance: OXAZEPAM
     Dosage: 50 MG, 1X/DAY
     Route: 048
     Dates: start: 20110502
  3. RIVOTRIL [Suspect]
     Active Substance: CLONAZEPAM
     Dosage: UNK
     Route: 048
     Dates: start: 20110211, end: 20110329
  4. THERALENE [Suspect]
     Active Substance: TRIMEPRAZINE
     Dosage: 20 MG, 1X/DAY
     Route: 048
     Dates: start: 20101011, end: 20110508
  5. NOCTAMIDE [Suspect]
     Active Substance: LORMETAZEPAM
     Dosage: 1 MG, 1X/DAY
     Route: 048
     Dates: start: 20110103, end: 20110509
  6. ADEPAL [Suspect]
     Active Substance: ETHINYL ESTRADIOL\LEVONORGESTREL
     Indication: ORAL CONTRACEPTION
     Dosage: 1 DF, DAILY
     Route: 048
     Dates: start: 20101109, end: 20110506
  7. SEROPLEX [Suspect]
     Active Substance: ESCITALOPRAM OXALATE
     Dosage: UNK
     Route: 048
     Dates: start: 20110211, end: 20110329

REACTIONS (1)
  - Hepatitis [Recovered/Resolved]

NARRATIVE: CASE EVENT DATE: 20110314
